FAERS Safety Report 18422456 (Version 2)
Quarter: 2020Q4

REPORT INFORMATION
  Report Type: Report from Study
  Country: IT (occurrence: IT)
  Receive Date: 20201023
  Receipt Date: 20201105
  Transmission Date: 20210114
  Serious: Yes (Hospitalization)
  Sender: FDA-Public Use
  Company Number: IT-B.I. PHARMACEUTICALS,INC./RIDGEFIELD-2020-BI-055400

PATIENT
  Age: 71 Year
  Sex: Male
  Weight: 0 kg

DRUGS (1)
  1. PRADAXA [Suspect]
     Active Substance: DABIGATRAN ETEXILATE MESYLATE
     Indication: ATRIAL FIBRILLATION
     Route: 048
     Dates: start: 20180622, end: 20200910

REACTIONS (3)
  - Oedema [Recovering/Resolving]
  - Perineal haematoma [Recovering/Resolving]
  - Scrotal haematoma [Recovering/Resolving]

NARRATIVE: CASE EVENT DATE: 20200909
